FAERS Safety Report 19959550 (Version 5)
Quarter: 2022Q3

REPORT INFORMATION
  Report Type: Report from Study
  Country: US (occurrence: US)
  Receive Date: 20211015
  Receipt Date: 20220728
  Transmission Date: 20221026
  Serious: Yes (Life-Threatening, Hospitalization)
  Sender: FDA-Public Use
  Company Number: US-AMGEN-USACT2021159263

PATIENT
  Age: 54 Year
  Sex: Male
  Weight: 124.55 kg

DRUGS (16)
  1. EVOLOCUMAB [Suspect]
     Active Substance: EVOLOCUMAB
     Indication: Dyslipidaemia
     Dosage: 140 MILLIGRAM, Q2WK
     Route: 058
     Dates: start: 20201110
  2. OZEMPIC [Suspect]
     Active Substance: SEMAGLUTIDE
     Indication: Acute kidney injury
     Dosage: UNK
     Route: 065
     Dates: start: 20200428, end: 20210728
  3. ROSUVASTATIN [Concomitant]
     Active Substance: ROSUVASTATIN
     Indication: Dyslipidaemia
     Dosage: 40 MILLIGRAM
     Route: 048
     Dates: start: 2012
  4. EZETIMIBE [Concomitant]
     Active Substance: EZETIMIBE
     Indication: Dyslipidaemia
     Dosage: 10 MILLIGRAM
     Route: 048
     Dates: start: 2012, end: 20210728
  5. FENOFIBRATE [Concomitant]
     Active Substance: FENOFIBRATE
     Indication: Dyslipidaemia
     Dosage: 160 MILLIGRAM
     Route: 048
     Dates: start: 2012, end: 20210728
  6. COLESEVELAM [Concomitant]
     Active Substance: COLESEVELAM
     Indication: Dyslipidaemia
     Dosage: 625 MILLIGRAM
     Route: 048
     Dates: start: 2012, end: 20210728
  7. ACETAMINOPHEN [Concomitant]
     Active Substance: ACETAMINOPHEN
     Dosage: UNK
     Dates: start: 2019, end: 20210804
  8. ASPIRIN [Concomitant]
     Active Substance: ASPIRIN
     Dosage: UNK
     Dates: start: 2012
  9. IBU [Concomitant]
     Active Substance: IBUPROFEN
     Dosage: UNK
     Dates: start: 2019, end: 20210728
  10. LISINOPRIL [Concomitant]
     Active Substance: LISINOPRIL
     Dosage: UNK
     Dates: start: 2015, end: 20210728
  11. METFORMIN [Concomitant]
     Active Substance: METFORMIN HYDROCHLORIDE
     Dosage: UNK
     Dates: start: 2015, end: 20210728
  12. METOPROLOL SUCCINATE [Concomitant]
     Active Substance: METOPROLOL SUCCINATE
     Dosage: UNK
     Dates: start: 2012, end: 20220201
  13. NITROGLYCERIN [Concomitant]
     Active Substance: NITROGLYCERIN
     Dosage: UNK
     Dates: start: 2012
  14. PREDNISONE [Concomitant]
     Active Substance: PREDNISONE
     Dosage: UNK
  15. CLOPIDOGREL [Concomitant]
     Active Substance: CLOPIDOGREL BISULFATE
     Dosage: UNK
     Dates: start: 20130124, end: 20210728
  16. CHLORTHALIDONE [Concomitant]
     Active Substance: CHLORTHALIDONE
     Dosage: UNK
     Dates: start: 20200428, end: 20210728

REACTIONS (1)
  - Acute kidney injury [Recovered/Resolved]

NARRATIVE: CASE EVENT DATE: 20210714
